FAERS Safety Report 6962372-3 (Version None)
Quarter: 2010Q3

REPORT INFORMATION
  Report Type: 
  Country: None (occurrence: None)
  Receive Date: 20100823
  Receipt Date: 20100609
  Transmission Date: 20110219
  Serious: No
  Sender: FDA-Public Use
  Company Number: 014081

PATIENT
  Sex: Female

DRUGS (1)
  1. CIMZIA [Suspect]
     Dosage: (TOOK 3 DOSES IN JAN /2010, LAST CIMZIA DOSE IN FEB/2010, SUBCUTANEOUS)
     Route: 058
     Dates: start: 20100101, end: 20100201

REACTIONS (2)
  - INJECTION SITE RASH [None]
  - RASH PRURITIC [None]
